FAERS Safety Report 6194601-0 (Version None)
Quarter: 2009Q2

REPORT INFORMATION
  Report Type: 
  Country: None (occurrence: None)
  Receive Date: 20090519
  Receipt Date: 20090511
  Transmission Date: 20091009
  Serious: Yes (Hospitalization)
  Sender: FDA-Public Use
  Company Number: PHHO2005US05909

PATIENT
  Sex: Female
  Weight: 52.9 kg

DRUGS (5)
  1. CIBADREX T29368+ [Suspect]
     Indication: HYPERTENSION
     Dosage: UNK, LEVEL 1
     Route: 048
     Dates: start: 20050323, end: 20050406
  2. CIBADREX T29368+ [Suspect]
     Dosage: UNK, LEVEL 2
     Route: 048
     Dates: start: 20050407, end: 20050410
  3. CIBADREX T29368+ [Suspect]
     Dosage: UNK, NO TREATMENT
     Dates: start: 20050411
  4. CIBADREX T29368+ [Suspect]
     Dosage: UNK, LEVEL 3
     Route: 048
     Dates: start: 20050503, end: 20050513
  5. HYDROCHLOROTHIAZIDE [Suspect]

REACTIONS (6)
  - CONFUSIONAL STATE [None]
  - DISTURBANCE IN ATTENTION [None]
  - DIZZINESS [None]
  - FALL [None]
  - HYPONATRAEMIA [None]
  - MALAISE [None]
